FAERS Safety Report 10703045 (Version 2)
Quarter: 2016Q1

REPORT INFORMATION
  Report Type: Report from Study
  Country: US (occurrence: US)
  Receive Date: 20150111
  Receipt Date: 20160211
  Transmission Date: 20160525
  Serious: No
  Sender: FDA-Public Use
  Company Number: US-AMGEN INC.-USASP2015000667

PATIENT
  Age: 60 Year
  Sex: Female

DRUGS (4)
  1. REMICADE [Concomitant]
     Active Substance: INFLIXIMAB
     Dosage: UNK
  2. ORENCIA [Concomitant]
     Active Substance: ABATACEPT
     Dosage: UNK
  3. ENBREL [Suspect]
     Active Substance: ETANERCEPT
     Indication: RHEUMATOID ARTHRITIS
     Dosage: 50 MG, QWK
     Route: 065
     Dates: start: 199902
  4. HUMIRA [Concomitant]
     Active Substance: ADALIMUMAB
     Dosage: UNK

REACTIONS (8)
  - General physical health deterioration [Unknown]
  - Gastroenteritis viral [Unknown]
  - Vomiting [Unknown]
  - Chills [Unknown]
  - Nasopharyngitis [Not Recovered/Not Resolved]
  - Sinusitis [Unknown]
  - Cough [Not Recovered/Not Resolved]
  - Malaise [Unknown]

NARRATIVE: CASE EVENT DATE: 2016
